FAERS Safety Report 5171585-5 (Version None)
Quarter: 2006Q4

REPORT INFORMATION
  Report Type: 
  Country: None (occurrence: None)
  Receive Date: 20061213
  Receipt Date: 20061122
  Transmission Date: 20070319
  Serious: Yes (Death, Life-Threatening, Hospitalization)
  Sender: FDA-Public Use
  Company Number: BEWYE627523NOV06

PATIENT
  Age: 55 Year
  Sex: Male
  Weight: 114 kg

DRUGS (7)
  1. ENBREL [Suspect]
     Indication: PSORIASIS
     Route: 058
     Dates: start: 20060901
  2. NADROPARIN CALCIUM [Suspect]
     Indication: ANTICOAGULANT THERAPY
     Route: 058
     Dates: end: 20061019
  3. MEDROL [Concomitant]
     Dosage: NOT PROVIDED
     Route: 048
  4. FOLIC ACID [Concomitant]
     Route: 048
  5. ZESTRIL [Concomitant]
     Route: 048
  6. PANTOZOL [Concomitant]
     Dosage: 1/DAY
     Route: 048
  7. TENORMIN [Concomitant]
     Route: 048

REACTIONS (9)
  - ASCITES INFECTION [None]
  - CONDITION AGGRAVATED [None]
  - ENCEPHALOPATHY [None]
  - GASTROINTESTINAL HYPOMOTILITY [None]
  - GENERALISED OEDEMA [None]
  - RENAL FAILURE [None]
  - RHABDOMYOLYSIS [None]
  - SEPTIC SHOCK [None]
  - THROMBOCYTOPENIA [None]
